FAERS Safety Report 23465468 (Version 1)
Quarter: 2024Q1

REPORT INFORMATION
  Report Type: Spontaneous
  Country: ES (occurrence: ES)
  Receive Date: 20240201
  Receipt Date: 20240201
  Transmission Date: 20240410
  Serious: Yes (Hospitalization, Other)
  Sender: FDA-Public Use
  Company Number: ES-BAXTER-2022BAX019866

PATIENT
  Age: 63 Year
  Sex: Female
  Weight: 53 kg

DRUGS (20)
  1. CYCLOPHOSPHAMIDE [Suspect]
     Active Substance: CYCLOPHOSPHAMIDE
     Indication: B-cell lymphoma
     Dosage: DOSAGE FORM: INJECTION, DAY 1 OF CYCLES 1-6 (750 MG/M2)
     Route: 042
     Dates: start: 20220719
  2. DOXORUBICIN [Suspect]
     Active Substance: DOXORUBICIN
     Indication: B-cell lymphoma
     Dosage: DOSAGE FORM: INJECTION, DAY 1 OF CYCLES 1-6 (50 MG/M2)
     Route: 042
     Dates: start: 20220719
  3. POLATUZUMAB VEDOTIN [Suspect]
     Active Substance: POLATUZUMAB VEDOTIN
     Indication: B-cell lymphoma
     Dosage: DAY 1 OF CYCLES 1-6 (1.8 MG/KG)
     Route: 042
     Dates: start: 20220719
  4. PREDNISONE [Suspect]
     Active Substance: PREDNISONE
     Indication: B-cell lymphoma
     Dosage: DAY 1-5 OF CYCLES 1-6 (100 MG)
     Route: 048
     Dates: start: 20220719
  5. RITUXIMAB [Suspect]
     Active Substance: RITUXIMAB
     Indication: B-cell lymphoma
     Dosage: DAY 1 OF CYCLES 1-6 (375 MG/M2)
     Route: 042
     Dates: start: 20220719
  6. FOLIC ACID [Concomitant]
     Active Substance: FOLIC ACID
     Indication: Folate deficiency
     Dosage: 5 MG 1 IN 24 HOUR
     Route: 048
     Dates: start: 20220719
  7. ACYCLOVIR [Concomitant]
     Active Substance: ACYCLOVIR
     Indication: Infection prophylaxis
     Dosage: 800MG (800MG, 1 IN 24 HR)
     Route: 048
     Dates: start: 20220719
  8. ALLOPURINOL [Concomitant]
     Active Substance: ALLOPURINOL
     Indication: Blood uric acid increased
     Dosage: 300 MG (300 MG,1 IN 24 HR)
     Route: 048
     Dates: start: 20220719
  9. EFFERALGAN [Concomitant]
     Active Substance: ACETAMINOPHEN
     Indication: Pain prophylaxis
     Dosage: 1 GM
     Route: 048
     Dates: start: 20220719
  10. FERROUS SULFATE [Concomitant]
     Active Substance: FERROUS SULFATE
     Indication: Iron deficiency
     Dosage: 325MG (325MG, 1 IN 24 HR)
     Route: 048
     Dates: start: 20220719
  11. FERROUS SULFATE [Concomitant]
     Active Substance: FERROUS SULFATE
     Indication: Iron deficiency anaemia
  12. FERROUS SULFATE [Concomitant]
     Active Substance: FERROUS SULFATE
     Indication: Prophylaxis
  13. LYRICA [Concomitant]
     Active Substance: PREGABALIN
     Indication: Pain
     Dosage: 50MG (50MG, 1 IN 24 HR)
     Route: 048
     Dates: start: 2022
  14. METOCLOPRAMIDA ACCORD [Concomitant]
     Indication: Nausea
     Dosage: 10 MG
     Route: 048
     Dates: start: 20220719
  15. METOCLOPRAMIDA ACCORD [Concomitant]
     Indication: Vomiting
  16. PANTOPRAZOLE SODIUM [Concomitant]
     Active Substance: PANTOPRAZOLE SODIUM
     Indication: Prophylaxis
     Dosage: 40MG  (40MG, 1 IN 24 HR)
     Route: 048
     Dates: start: 20220719
  17. SULFAMETHOXAZOLE\TRIMETHOPRIM [Concomitant]
     Active Substance: SULFAMETHOXAZOLE\TRIMETHOPRIM
     Indication: Infection prophylaxis
     Dosage: (160MG, 3 IN 1WK)
     Route: 048
     Dates: start: 20220719
  18. VALSARTAN [Concomitant]
     Active Substance: VALSARTAN
     Indication: Hypertension
     Dosage: (1 IN 24HR)
     Route: 048
     Dates: start: 2022
  19. ZOFRAN [Concomitant]
     Active Substance: ONDANSETRON HYDROCHLORIDE
     Indication: Nausea
     Dosage: (8 MG,1 AS REQUIRED)
     Route: 048
     Dates: start: 20220720
  20. ZOFRAN [Concomitant]
     Active Substance: ONDANSETRON HYDROCHLORIDE
     Indication: Vomiting

REACTIONS (1)
  - Cytokine release syndrome [Recovered/Resolved]

NARRATIVE: CASE EVENT DATE: 20220803
